FAERS Safety Report 7263570-4 (Version None)
Quarter: 2011Q1

REPORT INFORMATION
  Report Type: 
  Country: None (occurrence: None)
  Receive Date: 20110130
  Receipt Date: 20101203
  Transmission Date: 20110831
  Serious: Yes (Other)
  Sender: FDA-Public Use
  Company Number: US-ABBOTT-10P-163-0689610-00

PATIENT
  Sex: Male

DRUGS (2)
  1. METOPROLOL [Concomitant]
     Indication: HYPERTENSION
     Dosage: HALF TAB DAILY
  2. HUMIRA [Suspect]
     Indication: PSORIATIC ARTHROPATHY
     Route: 058
     Dates: start: 20080101, end: 20101203

REACTIONS (2)
  - EAR INFECTION [None]
  - COELIAC DISEASE [None]
